FAERS Safety Report 6149089-2 (Version None)
Quarter: 2009Q2

REPORT INFORMATION
  Report Type: 
  Country: None (occurrence: None)
  Receive Date: 20090409
  Receipt Date: 20090330
  Transmission Date: 20091009
  Serious: Yes (Hospitalization)
  Sender: FDA-Public Use
  Company Number: PHHY2009FR12434

PATIENT
  Age: 79 Year
  Sex: Female

DRUGS (6)
  1. TAREG [Suspect]
     Dosage: 60 MG DAILY
  2. MONICOR L.P. [Interacting]
     Dosage: 20 MG DAILY
  3. LASIX [Interacting]
     Dosage: 40 MG DAILY
  4. RISPERDAL [Interacting]
     Dosage: 0.5 MG DAILY
  5. SOTALOL HYDROCHLORIDE [Interacting]
  6. VASTAREL [Interacting]
     Dosage: 2 DF DAILY

REACTIONS (5)
  - DRUG INTERACTION [None]
  - FALL [None]
  - HEAD INJURY [None]
  - MALAISE [None]
  - ORTHOSTATIC HYPOTENSION [None]
